FAERS Safety Report 6504761-7 (Version None)
Quarter: 2009Q4

REPORT INFORMATION
  Report Type: 
  Country: None (occurrence: None)
  Receive Date: 20091216
  Receipt Date: 20091203
  Transmission Date: 20100525
  Serious: Yes (Hospitalization)
  Sender: FDA-Public Use
  Company Number: 429930

PATIENT
  Age: 47 Year
  Sex: Female

DRUGS (4)
  1. PACLITAXEL [Suspect]
     Dosage: 200 MG, INTRAVENOUS
     Route: 042
     Dates: start: 20091027, end: 20091027
  2. PACLITAXEL [Suspect]
     Dosage: 60 MG, INTRAVENOUS
     Route: 042
     Dates: start: 20091027, end: 20091027
  3. ZOFRAN [Concomitant]
  4. DECADRON [Concomitant]

REACTIONS (3)
  - CHEST PAIN [None]
  - ERYTHEMA [None]
  - HYPERHIDROSIS [None]
